FAERS Safety Report 8556008-8 (Version None)
Quarter: 2012Q3

REPORT INFORMATION
  Report Type: 
  Country: None (occurrence: None)
  Receive Date: 20120801
  Receipt Date: 20120724
  Transmission Date: 20120928
  Serious: Yes (Other)
  Sender: FDA-Public Use
  Company Number: US-009507513-1207USA010860

PATIENT

DRUGS (1)
  1. PEG-INTRON [Suspect]
     Indication: GLIOMA
     Dosage: 0.3 MICROGRAM PER KILOGRAM, QW
     Route: 058

REACTIONS (1)
  - TOXICITY TO VARIOUS AGENTS [None]
